FAERS Safety Report 24935075 (Version 1)
Quarter: 2025Q1

REPORT INFORMATION
  Report Type: Spontaneous
  Country: BG (occurrence: BG)
  Receive Date: 20250206
  Receipt Date: 20250206
  Transmission Date: 20250409
  Serious: Yes (Other)
  Sender: CADILA
  Company Number: BG-CPL-004962

PATIENT
  Age: 88 Year
  Sex: Male

DRUGS (3)
  1. TELMISARTAN [Suspect]
     Active Substance: TELMISARTAN
     Indication: Hypertension
     Dosage: ONE TABLET IN THE MORNING AND HALF A TABLET IN THE EVENING FOR THE PAST 5-6 YEARS
  2. TAMSULOSIN [Suspect]
     Active Substance: TAMSULOSIN
     Indication: Benign prostatic hyperplasia
     Dosage: IN THE EVENING FOR THE PAST 7-8 YEARS
  3. LIDOCAINE [Concomitant]
     Active Substance: LIDOCAINE
     Indication: Local anaesthesia

REACTIONS (2)
  - Actinic keratosis [Recovered/Resolved]
  - Keratoacanthoma [Recovered/Resolved]
